FAERS Safety Report 7508733-5 (Version None)
Quarter: 2011Q2

REPORT INFORMATION
  Report Type: 
  Country: None (occurrence: None)
  Receive Date: 20110527
  Receipt Date: 20101025
  Transmission Date: 20111010
  Serious: No
  Sender: FDA-Public Use
  Company Number: A0888632A

PATIENT
  Age: 75 Year
  Sex: Male

DRUGS (6)
  1. ADALAT [Concomitant]
  2. LOPID [Concomitant]
  3. INDERAL [Concomitant]
  4. VENTOLIN [Suspect]
     Indication: PRODUCTIVE COUGH
     Dosage: 2PUFF THREE TIMES PER DAY
     Route: 055
     Dates: start: 20101014, end: 20101024
  5. OMEPRAZOLE [Concomitant]
  6. ASPIRIN [Concomitant]

REACTIONS (2)
  - MUSCULOSKELETAL PAIN [None]
  - PAIN IN EXTREMITY [None]
